FAERS Safety Report 11642579 (Version 2)
Quarter: 2015Q4

REPORT INFORMATION
  Report Type: Report from Study
  Country: US (occurrence: US)
  Receive Date: 20151020
  Receipt Date: 20151201
  Transmission Date: 20160304
  Serious: No
  Sender: FDA-Public Use
  Company Number: US-AMGEN-USASL2015107714

PATIENT
  Age: 50 Year
  Sex: Female

DRUGS (1)
  1. ENBREL [Suspect]
     Active Substance: ETANERCEPT
     Indication: RHEUMATOID ARTHRITIS
     Dosage: 50 MG, QWK
     Route: 065
     Dates: start: 20151006, end: 20151027

REACTIONS (18)
  - Muscle spasms [Unknown]
  - Respiratory tract congestion [Unknown]
  - Malaise [Unknown]
  - Injection site pain [Unknown]
  - Tearfulness [Unknown]
  - Lower extremity mass [Unknown]
  - Injection site pruritus [Unknown]
  - Anxiety [Unknown]
  - Pyrexia [Unknown]
  - Arthropathy [Unknown]
  - Insomnia [Unknown]
  - Gait disturbance [Unknown]
  - Chest discomfort [Unknown]
  - Weight decreased [Unknown]
  - Hyperhidrosis [Unknown]
  - Emotional disorder [Not Recovered/Not Resolved]
  - Feeling abnormal [Unknown]
  - Injection site erythema [Unknown]

NARRATIVE: CASE EVENT DATE: 2015
